FAERS Safety Report 15296878 (Version 7)
Quarter: 2022Q3

REPORT INFORMATION
  Report Type: Report from Study
  Country: US (occurrence: US)
  Receive Date: 20180820
  Receipt Date: 20220810
  Transmission Date: 20221027
  Serious: Yes (Life-Threatening, Hospitalization, Other)
  Sender: FDA-Public Use
  Company Number: US-BRISTOL-MYERS SQUIBB COMPANY-BMS-2018-077195

PATIENT
  Age: 65 Year
  Sex: Male
  Weight: 80.599 kg

DRUGS (35)
  1. NIVOLUMAB [Suspect]
     Active Substance: NIVOLUMAB
     Indication: Malignant melanoma
     Dosage: 1 DF 240 UNITS NOT SPECIFIED Q2WK
     Route: 065
     Dates: start: 20180629, end: 20180629
  2. NIVOLUMAB [Suspect]
     Active Substance: NIVOLUMAB
     Indication: Lung neoplasm malignant
     Dosage: 240 (UNSPECIFIED UNITS)
     Route: 065
     Dates: start: 20180713, end: 20180713
  3. NIVOLUMAB [Suspect]
     Active Substance: NIVOLUMAB
     Dosage: 240 (UNSPECIFIED UNITS)
     Route: 065
     Dates: start: 20180727, end: 20180727
  4. NIVOLUMAB [Suspect]
     Active Substance: NIVOLUMAB
     Dosage: 240 (UNSPECIFIED UNITS)
     Route: 065
     Dates: start: 20180810, end: 20180810
  5. NIVOLUMAB [Suspect]
     Active Substance: NIVOLUMAB
     Dosage: 240 (UNSPECIFIED UNITS)
     Route: 065
     Dates: end: 20190813
  6. ASPIRIN [Concomitant]
     Active Substance: ASPIRIN
     Indication: Deep vein thrombosis
     Dosage: `81 MG, QD
     Route: 048
     Dates: start: 201702
  7. BIOTIN [Concomitant]
     Active Substance: BIOTIN
     Indication: Product used for unknown indication
     Dosage: 1 MG, QD
     Route: 048
     Dates: start: 201701
  8. PRILOSEC [Concomitant]
     Active Substance: OMEPRAZOLE MAGNESIUM
     Indication: Prophylaxis
     Dosage: 20 MG, UNK
     Route: 048
     Dates: start: 201806, end: 20180709
  9. PREDNISONE [Concomitant]
     Active Substance: PREDNISONE
     Indication: Giant cell arteritis
     Dosage: 20 MG, BID
     Route: 048
     Dates: start: 20180629, end: 20180719
  10. PREDNISONE [Concomitant]
     Active Substance: PREDNISONE
     Dosage: 20 MG, QD
     Route: 048
     Dates: start: 20180720, end: 20180809
  11. PREDNISONE [Concomitant]
     Active Substance: PREDNISONE
     Dosage: 10 MG, QD
     Route: 048
     Dates: start: 20180810
  12. PREDNISONE [Concomitant]
     Active Substance: PREDNISONE
     Dosage: 10 MG, QD
     Route: 048
     Dates: start: 20180816, end: 20180817
  13. TYLENOL [Concomitant]
     Active Substance: ACETAMINOPHEN
     Indication: Product used for unknown indication
     Dosage: 975 MG, MILLIGRAM ONCE
     Route: 048
     Dates: start: 20180812, end: 20180812
  14. AMOXICILLIN [Concomitant]
     Active Substance: AMOXICILLIN
     Indication: Product used for unknown indication
     Dosage: 875 MG, BID
     Route: 048
     Dates: start: 20180816, end: 20180817
  15. CLAVULANATE POTASSIUM [Concomitant]
     Active Substance: CLAVULANATE POTASSIUM
     Indication: Product used for unknown indication
     Dosage: 125 MG, MILLIGRAM
     Route: 048
     Dates: start: 20180816, end: 20180817
  16. ZITHROMAX [Concomitant]
     Active Substance: AZITHROMYCIN DIHYDRATE
     Indication: Product used for unknown indication
     Dosage: 500 MG, BID
     Route: 042
     Dates: start: 20180812, end: 20180812
  17. GLYCOLAX [Concomitant]
     Active Substance: POLYETHYLENE GLYCOL 3350
     Indication: Prophylaxis
     Dosage: 17 G, PRN
     Route: 048
     Dates: start: 20180816, end: 20180816
  18. GLYCOLAX [Concomitant]
     Active Substance: POLYETHYLENE GLYCOL 3350
     Dosage: 17 G, QD
     Route: 048
     Dates: start: 20180815, end: 20180815
  19. IOHEXOL [Concomitant]
     Active Substance: IOHEXOL
     Indication: Product used for unknown indication
     Dosage: 100 ML, ONE TIME DOSE
     Route: 042
     Dates: start: 20180812, end: 20180812
  20. IOHEXOL [Concomitant]
     Active Substance: IOHEXOL
     Dosage: 100 ML, ONE TIME DOSE
     Route: 042
     Dates: start: 20180814, end: 20180814
  21. SODIUM CHLORIDE [Concomitant]
     Active Substance: SODIUM CHLORIDE
     Indication: Fluid replacement
     Dosage: 0.9 %, QD
     Route: 042
     Dates: start: 20180812, end: 20180815
  22. SODIUM CHLORIDE [Concomitant]
     Active Substance: SODIUM CHLORIDE
     Dosage: 0.9 %, ONCE X 6
     Route: 042
     Dates: start: 20180812, end: 20180812
  23. VANCOCIN [Concomitant]
     Active Substance: VANCOMYCIN HYDROCHLORIDE
     Indication: Product used for unknown indication
     Dosage: 1250 MG, BID
     Route: 042
     Dates: start: 20180812, end: 20180814
  24. VANCOCIN [Concomitant]
     Active Substance: VANCOMYCIN HYDROCHLORIDE
     Dosage: 1000 MG, ONCE X 2
     Route: 042
     Dates: start: 20180812, end: 20180812
  25. POTASSIUM CHLORIDE [Concomitant]
     Active Substance: POTASSIUM CHLORIDE
     Indication: Hypokalaemia
     Dosage: 40 MEQ, PRN
     Route: 048
     Dates: start: 20180815, end: 20180816
  26. ZOSYN [Concomitant]
     Active Substance: PIPERACILLIN SODIUM\TAZOBACTAM SODIUM
     Indication: Product used for unknown indication
     Dosage: 4.5 G, ONE TIME DOSE
     Route: 042
     Dates: start: 20180812, end: 20180812
  27. ZOSYN [Concomitant]
     Active Substance: PIPERACILLIN SODIUM\TAZOBACTAM SODIUM
     Dosage: 4.5 G, Q6H
     Route: 042
     Dates: start: 20180812, end: 20180816
  28. OMEPRAZOLE [Concomitant]
     Active Substance: OMEPRAZOLE
     Indication: Prophylaxis
     Dosage: 40 MG, QD
     Route: 048
     Dates: start: 20180812, end: 20180817
  29. OMEPRAZOLE [Concomitant]
     Active Substance: OMEPRAZOLE
     Dosage: 80 MG, ONE TIME DOSE
     Route: 042
     Dates: start: 20180812, end: 20180812
  30. HYDROCORTISONE [Concomitant]
     Active Substance: HYDROCORTISONE
     Indication: Product used for unknown indication
     Dosage: 50 MG, Q6H
     Route: 042
     Dates: start: 20180812, end: 20180814
  31. HYDROCORTISONE [Concomitant]
     Active Substance: HYDROCORTISONE
     Dosage: 50 MG, Q8H
     Route: 042
     Dates: start: 20180814, end: 20180815
  32. HYDROCORTISONE [Concomitant]
     Active Substance: HYDROCORTISONE
     Dosage: 50 MG, Q12H
     Route: 042
     Dates: start: 20180815, end: 20180816
  33. LOVENOX [Concomitant]
     Active Substance: ENOXAPARIN SODIUM
     Indication: Product used for unknown indication
     Dosage: 40 MG, QD
     Route: 058
     Dates: start: 20180813, end: 20180817
  34. HEPARIN [Concomitant]
     Active Substance: HEPARIN SODIUM
     Indication: Product used for unknown indication
     Dosage: 15000 UNIT 5000 UNIT 5000 UNIT, Q8H
     Route: 058
     Dates: start: 20180812, end: 20180813
  35. COLACE [Concomitant]
     Active Substance: DOCUSATE SODIUM
     Indication: Product used for unknown indication
     Dosage: 100 MG, BID
     Route: 048
     Dates: start: 20180814, end: 20180814

REACTIONS (6)
  - Sepsis [Unknown]
  - Malignant neoplasm progression [Unknown]
  - Anaemia [Unknown]
  - Skin laceration [Unknown]
  - Groin pain [Unknown]
  - Swelling [Unknown]

NARRATIVE: CASE EVENT DATE: 20180629
